FAERS Safety Report 9580448 (Version 1)
Quarter: 2013Q3

REPORT INFORMATION
  Report Type: Spontaneous
  Country: IT (occurrence: None)
  Receive Date: 20130916
  Receipt Date: 20130916
  Transmission Date: 20140515
  Serious: Yes (Death, Other)
  Sender: FDA-Public Use
  Company Number: JPI-P-026288

PATIENT
  Age: 43 Year
  Sex: Male
  Weight: 77 kg

DRUGS (2)
  1. SODIUM OXYBATE [Suspect]
     Indication: DRUG ABUSE
     Route: 048
  2. MEPHEDRONE [Suspect]
     Indication: DRUG ABUSE

REACTIONS (2)
  - Drug abuse [None]
  - Loss of consciousness [None]
